FAERS Safety Report 14071963 (Version 1)
Quarter: 2017Q4

REPORT INFORMATION
  Report Type: Spontaneous
  Country: US (occurrence: US)
  Receive Date: 20171010
  Receipt Date: 20171010
  Transmission Date: 20180321
  Serious: Yes (Hospitalization)
  Sender: FDA-Public Use
  Company Number: None

PATIENT
  Age: 85 Year
  Sex: Female

DRUGS (1)
  1. IMATINIB [Suspect]
     Active Substance: IMATINIB
     Indication: CHLOROMA
     Route: 048
     Dates: start: 20170906, end: 20170926

REACTIONS (3)
  - Lymphadenopathy [None]
  - Pharyngeal oedema [None]
  - Swollen tongue [None]

NARRATIVE: CASE EVENT DATE: 20170926
